FAERS Safety Report 4316458-2 (Version None)
Quarter: 2004Q1

REPORT INFORMATION
  Report Type: 
  Country: None (occurrence: None)
  Receive Date: 20040311
  Receipt Date: 20040305
  Transmission Date: 20041129
  Serious: Yes (Life-Threatening)
  Sender: FDA-Public Use
  Company Number: ENT 2004-0037

PATIENT
  Age: 79 Year
  Sex: Male

DRUGS (1)
  1. COMTAN [Suspect]
     Indication: HEART VALVE REPLACEMENT
     Dosage: 800 MG (200 MG, 4 IN 1 D),ORAL
     Route: 048
     Dates: start: 20031112

REACTIONS (3)
  - ANAEMIA [None]
  - DIARRHOEA HAEMORRHAGIC [None]
  - PROTHROMBIN LEVEL DECREASED [None]
